FAERS Safety Report 9695133 (Version 4)
Quarter: 2014Q1

REPORT INFORMATION
  Report Type: Spontaneous
  Country: DE (occurrence: DE)
  Receive Date: 20131119
  Receipt Date: 20140325
  Transmission Date: 20141002
  Serious: Yes (Hospitalization, Other)
  Sender: FDA-Public Use
  Company Number: DE-JNJFOC-20131110058

PATIENT
  Age: 79 Year
  Sex: Male
  Weight: 77 kg

DRUGS (6)
  1. XARELTO [Suspect]
     Indication: CEREBROVASCULAR ACCIDENT PROPHYLAXIS
     Route: 048
     Dates: start: 20130921, end: 20131017
  2. XARELTO [Suspect]
     Indication: ATRIAL FIBRILLATION
     Route: 048
     Dates: start: 20130921, end: 20131017
  3. RAMIPRIL [Concomitant]
     Indication: HYPERTENSION
     Route: 048
  4. TAMSULOSIN [Concomitant]
     Indication: BENIGN PROSTATIC HYPERPLASIA
     Route: 048
  5. NEBILET [Concomitant]
     Indication: HYPERTENSION
     Route: 048
  6. TORASEMID [Concomitant]
     Indication: CARDIAC FAILURE
     Route: 048
     Dates: start: 201309

REACTIONS (8)
  - Cholestasis [Recovering/Resolving]
  - Jaundice [Recovering/Resolving]
  - Blood bilirubin increased [Recovering/Resolving]
  - Alanine aminotransferase increased [Recovering/Resolving]
  - Gamma-glutamyltransferase increased [Recovering/Resolving]
  - Aspartate aminotransferase increased [Recovering/Resolving]
  - Blood alkaline phosphatase increased [Recovering/Resolving]
  - Drug-induced liver injury [Recovering/Resolving]
